FAERS Safety Report 8334763-X (Version None)
Quarter: 2012Q2

REPORT INFORMATION
  Report Type: 
  Country: None (occurrence: None)
  Receive Date: 20120503
  Receipt Date: 20120430
  Transmission Date: 20120825
  Serious: Yes (Death, Other)
  Sender: FDA-Public Use
  Company Number: US-B.I. PHARMACEUTICALS,INC./RIDGEFIELD-2012-BP-09368BP

PATIENT
  Age: 6 Decade
  Sex: Male

DRUGS (5)
  1. FOLIC ACID [Concomitant]
  2. METFORMIN HCL [Concomitant]
  3. PRADAXA [Suspect]
     Indication: ATRIAL FIBRILLATION
     Dates: start: 20120101
  4. ALLOPURINOL [Concomitant]
  5. ATENOLOL [Concomitant]

REACTIONS (3)
  - RECTAL HAEMORRHAGE [None]
  - ROAD TRAFFIC ACCIDENT [None]
  - GASTROINTESTINAL HAEMORRHAGE [None]
